FAERS Safety Report 4351772-6 (Version None)
Quarter: 2004Q2

REPORT INFORMATION
  Report Type: 
  Country: None (occurrence: None)
  Receive Date: 20040503
  Receipt Date: 20040420
  Transmission Date: 20050107
  Serious: Yes (Other)
  Sender: FDA-Public Use
  Company Number: GB-GLAXOSMITHKLINE-B0330640A

PATIENT
  Age: 80 Year
  Sex: Male

DRUGS (4)
  1. LANOXIN [Suspect]
     Indication: ATRIAL FIBRILLATION
     Route: 048
     Dates: start: 19610101
  2. BENDROFLUAZIDE [Concomitant]
  3. RAMIPRIL [Concomitant]
  4. SIMVASTATIN [Concomitant]

REACTIONS (3)
  - BLOOD BILIRUBIN INCREASED [None]
  - TREMOR [None]
  - VISION BLURRED [None]
